FAERS Safety Report 15305959 (Version 1)
Quarter: 2018Q3

REPORT INFORMATION
  Report Type: Spontaneous
  Country: US (occurrence: US)
  Receive Date: 20180810
  Receipt Date: 20180810
  Transmission Date: 20181010
  Serious: Yes (Hospitalization)
  Sender: FDA-Public Use
  Company Number: None

PATIENT
  Age: 68 Year
  Sex: Male

DRUGS (7)
  1. AMBIEN [Concomitant]
     Active Substance: ZOLPIDEM TARTRATE
  2. STELARA [Suspect]
     Active Substance: USTEKINUMAB
     Indication: CROHN^S DISEASE
     Dosage: ?          OTHER FREQUENCY:Q8WKS;?
     Route: 058
     Dates: start: 20171122
  3. FLOMAX [Concomitant]
     Active Substance: TAMSULOSIN HYDROCHLORIDE
  4. OXYDODONE [Concomitant]
     Active Substance: OXYCODONE
  5. CLONAZEPAM. [Concomitant]
     Active Substance: CLONAZEPAM
  6. GABAPENTIN. [Concomitant]
     Active Substance: GABAPENTIN
  7. OXYCONTIN [Concomitant]
     Active Substance: OXYCODONE HYDROCHLORIDE

REACTIONS (3)
  - Diarrhoea [None]
  - Crohn^s disease [None]
  - Weight decreased [None]

NARRATIVE: CASE EVENT DATE: 20180709
